FAERS Safety Report 5446440-3 (Version None)
Quarter: 2007Q3

REPORT INFORMATION
  Report Type: 
  Country: None (occurrence: None)
  Receive Date: 20070907
  Receipt Date: 20070830
  Transmission Date: 20080115
  Serious: Yes (Hospitalization)
  Sender: FDA-Public Use
  Company Number: US-MERCK-0709USA00274

PATIENT
  Age: 56 Year
  Sex: Male

DRUGS (8)
  1. HYZAAR [Suspect]
     Indication: HYPERTENSION
     Route: 048
     Dates: start: 20021201, end: 20041001
  2. TOPROL-XL [Concomitant]
     Route: 048
  3. ASPIRIN [Concomitant]
     Route: 048
  4. PREVACID [Concomitant]
     Route: 048
  5. OXYCONTIN [Concomitant]
     Route: 048
  6. OXYCODONE [Concomitant]
     Indication: SPONDYLITIS
     Route: 048
  7. NORVASC [Concomitant]
     Route: 048
  8. ALLEGRA [Concomitant]
     Indication: HYPERSENSITIVITY
     Route: 048

REACTIONS (2)
  - HYPOTENSION [None]
  - HYPOVOLAEMIA [None]
